FAERS Safety Report 6180672-4 (Version None)
Quarter: 2009Q2

REPORT INFORMATION
  Report Type: 
  Country: None (occurrence: None)
  Receive Date: 20090506
  Receipt Date: 20090504
  Transmission Date: 20091009
  Serious: Yes (Other)
  Sender: FDA-Public Use
  Company Number: US-BAYER-01/02299-USE

PATIENT
  Age: 35 Year
  Sex: Female

DRUGS (2)
  1. BETASERON [Suspect]
     Indication: RELAPSING-REMITTING MULTIPLE SCLEROSIS
     Dosage: TOTAL DAILY DOSE: 8 MIU
     Route: 058
     Dates: start: 19920101, end: 20010201
  2. BETASERON [Suspect]
     Route: 058
     Dates: start: 20010101

REACTIONS (6)
  - ABORTION SPONTANEOUS [None]
  - BACK PAIN [None]
  - BLINDNESS TRANSIENT [None]
  - HEADACHE [None]
  - MULTIPLE SCLEROSIS [None]
  - ORAL HERPES [None]
